FAERS Safety Report 12937849 (Version 1)
Quarter: 2016Q4

REPORT INFORMATION
  Report Type: Spontaneous
  Country: BE (occurrence: BE)
  Receive Date: 20161114
  Receipt Date: 20161114
  Transmission Date: 20170207
  Serious: Yes (Other)
  Sender: FDA-Public Use
  Company Number: BE-PFIZER INC-2016525084

PATIENT
  Sex: Male

DRUGS (1)
  1. TOTALIP [Suspect]
     Active Substance: ATORVASTATIN
     Dosage: UNK
     Route: 048

REACTIONS (1)
  - Thymoma [Unknown]
